FAERS Safety Report 8187421-9 (Version None)
Quarter: 2012Q1

REPORT INFORMATION
  Report Type: 
  Country: None (occurrence: None)
  Receive Date: 20120306
  Receipt Date: 20120224
  Transmission Date: 20120608
  Serious: Yes (Hospitalization)
  Sender: FDA-Public Use
  Company Number: FR-ROCHE-1043504

PATIENT
  Sex: Female

DRUGS (12)
  1. MABTHERA [Suspect]
     Dosage: MAINTENANCE TREATMENT
     Dates: start: 20090611
  2. MABTHERA [Suspect]
     Dosage: INDUCTION TREATMENT
     Dates: start: 20070927
  3. MABTHERA [Suspect]
     Dosage: MAINTENANCE TREATMENT
     Dates: start: 20081218
  4. MABTHERA [Suspect]
     Dosage: MAINTENANCE TREATMENT
     Dates: start: 20080110
  5. MABTHERA [Suspect]
     Dosage: MAINTENANCE TREATMENT
     Dates: start: 20090312
  6. MABTHERA [Suspect]
     Dosage: MAINTENANCE TREATMENT
     Dates: start: 20091126
  7. MABTHERA [Suspect]
     Dosage: MAINTENANCE TREATMENT
     Dates: start: 20080410
  8. MABTHERA [Suspect]
     Dosage: INDUCTION TREATMENT
     Dates: start: 20071004
  9. MABTHERA [Suspect]
     Dosage: INDUCTION TREATMENT
     Dates: start: 20071011
  10. MABTHERA [Suspect]
     Indication: B-CELL LYMPHOMA
     Dosage: INDUCTION TREATMENT
     Dates: start: 20070920
  11. MABTHERA [Suspect]
     Dosage: MAINTENANCE TREATMENT
     Dates: start: 20080925
  12. MABTHERA [Suspect]
     Dosage: MAINTENANCE TREATMENT
     Dates: start: 20090903

REACTIONS (1)
  - LUNG ADENOCARCINOMA [None]
